FAERS Safety Report 19376926 (Version 2)
Quarter: 2021Q3

REPORT INFORMATION
  Report Type: Report from Study
  Country: CA (occurrence: CA)
  Receive Date: 20210604
  Receipt Date: 20210802
  Transmission Date: 20211014
  Serious: Yes (Hospitalization, Other)
  Sender: FDA-Public Use
  Company Number: CA-TAKEDA-2021TUS023249

PATIENT
  Age: 21 Year
  Sex: Male

DRUGS (4)
  1. VEDOLIZUMAB [Suspect]
     Active Substance: VEDOLIZUMAB
     Indication: CROHN^S DISEASE
     Dosage: 300 MILLIGRAM
     Route: 042
     Dates: start: 20200813
  2. PANTOLOC [Suspect]
     Active Substance: PANTOPRAZOLE SODIUM
     Indication: ILL-DEFINED DISORDER
     Dosage: UNK
     Route: 065
  3. VEDOLIZUMAB [Suspect]
     Active Substance: VEDOLIZUMAB
     Dosage: 300 MILLIGRAM, Q4WEEKS
     Route: 042
     Dates: start: 20201217
  4. VEDOLIZUMAB [Suspect]
     Active Substance: VEDOLIZUMAB
     Dosage: 300 MILLIGRAM, Q4WEEKS
     Route: 042
     Dates: start: 20201217

REACTIONS (13)
  - Malaise [Unknown]
  - Post-traumatic stress disorder [Unknown]
  - Anaphylactic shock [Unknown]
  - Suicidal ideation [Unknown]
  - Depressed mood [Unknown]
  - Anxiety [Unknown]
  - Off label use [Unknown]
  - Constipation [Unknown]
  - Tonsillitis bacterial [Unknown]
  - Asthenia [Unknown]
  - Claustrophobia [Unknown]
  - Chest pain [Unknown]
  - Abdominal pain [Unknown]

NARRATIVE: CASE EVENT DATE: 20201217
